FAERS Safety Report 11010604 (Version 5)
Quarter: 2016Q4

REPORT INFORMATION
  Report Type: Spontaneous
  Country: US (occurrence: US)
  Receive Date: 20150410
  Receipt Date: 20161111
  Transmission Date: 20170206
  Serious: Yes (Hospitalization, Other)
  Sender: FDA-Public Use
  Company Number: US-PFIZER INC-2015123925

PATIENT
  Age: 61 Year
  Sex: Female

DRUGS (12)
  1. FEXOFENADINE [Concomitant]
     Active Substance: FEXOFENADINE\FEXOFENADINE HYDROCHLORIDE
     Dosage: UNK
  2. FLUTICASONE PROPIONATE. [Concomitant]
     Active Substance: FLUTICASONE PROPIONATE
     Dosage: 50 ?G, 1 SPRAY EACH NOSTRIL 2X/DAY
     Route: 045
  3. DICYCLOMINE [Concomitant]
     Active Substance: DICYCLOMINE HYDROCHLORIDE
     Indication: GASTRIC DISORDER
     Dosage: UNK
  4. KLONOPIN [Concomitant]
     Active Substance: CLONAZEPAM
     Dosage: UNK
  5. TOVIAZ [Suspect]
     Active Substance: FESOTERODINE FUMARATE
     Indication: HYPERTONIC BLADDER
     Dosage: 8 MG, DAILY
  6. XOPENEX [Concomitant]
     Active Substance: LEVALBUTEROL HYDROCHLORIDE
     Dosage: UNK, AS NEEDED
  7. BENADRYL [Concomitant]
     Active Substance: DIPHENHYDRAMINE HYDROCHLORIDE
     Dosage: UNK, AS NEEDED
  8. LIALDA [Concomitant]
     Active Substance: MESALAMINE
     Dosage: 2.4 G, DAILY
  9. CELEBREX [Suspect]
     Active Substance: CELECOXIB
     Indication: OSTEOARTHRITIS
     Dosage: 200 MG, 2X/DAY
  10. PSEUDOEPHEDRINE HYDROCHLORIDE. [Concomitant]
     Active Substance: PSEUDOEPHEDRINE HYDROCHLORIDE
     Dosage: UNK
  11. QVAR [Concomitant]
     Active Substance: BECLOMETHASONE DIPROPIONATE
     Indication: ALLERGIC BRONCHITIS
     Dosage: 2 INHALATIONS, 2X/DAY
     Route: 055
  12. TYLENOL ARTHRITIS PAIN [Concomitant]
     Active Substance: ACETAMINOPHEN
     Indication: HEADACHE
     Dosage: UNK, AS NEEDED

REACTIONS (8)
  - Herpes zoster [Unknown]
  - Anaemia [Unknown]
  - Swelling [Unknown]
  - Colitis ulcerative [Unknown]
  - Anxiety [Unknown]
  - Hepatic enzyme abnormal [Unknown]
  - Abdominal discomfort [Unknown]
  - Irritable bowel syndrome [Unknown]

NARRATIVE: CASE EVENT DATE: 201412
